FAERS Safety Report 12581940 (Version 2)
Quarter: 2016Q3

REPORT INFORMATION
  Report Type: Spontaneous
  Country: US (occurrence: US)
  Receive Date: 20160722
  Receipt Date: 20160729
  Transmission Date: 20161109
  Serious: No
  Sender: FDA-Public Use
  Company Number: US-HORIZON-ACT-0175-2016

PATIENT
  Age: 31 Year
  Sex: Male

DRUGS (3)
  1. ITRACONAZOLE. [Concomitant]
     Active Substance: ITRACONAZOLE
  2. BACTRIM [Concomitant]
     Active Substance: SULFAMETHOXAZOLE\TRIMETHOPRIM
  3. ACTIMMUNE [Suspect]
     Active Substance: INTERFERON GAMMA-1B
     Indication: CHRONIC GRANULOMATOUS DISEASE
     Dosage: 100 ?G TIW
     Dates: start: 201406

REACTIONS (1)
  - Influenza like illness [Recovered/Resolved]
